FAERS Safety Report 9734105 (Version 1)
Quarter: 2013Q4

REPORT INFORMATION
  Report Type: Spontaneous
  Country: US (occurrence: US)
  Receive Date: 20131205
  Receipt Date: 20131205
  Transmission Date: 20140711
  Serious: Yes (Congenital Anomaly)
  Sender: FDA-Public Use
  Company Number: US-FRI-1000051854

PATIENT
  Age: 0 Day
  Sex: Male

DRUGS (1)
  1. LEXAPRO [Suspect]
     Route: 064

REACTIONS (6)
  - Ventricular septal defect [Not Recovered/Not Resolved]
  - Congenital ectopic bladder [Not Recovered/Not Resolved]
  - Epispadias [Not Recovered/Not Resolved]
  - Inguinal hernia [Not Recovered/Not Resolved]
  - Anal atresia [Not Recovered/Not Resolved]
  - Perineal fistula [Not Recovered/Not Resolved]
